FAERS Safety Report 4429841-1 (Version None)
Quarter: 2004Q3

REPORT INFORMATION
  Report Type: 
  Country: None (occurrence: None)
  Receive Date: 20040817
  Receipt Date: 20040804
  Transmission Date: 20050211
  Serious: Yes (Other)
  Sender: FDA-Public Use
  Company Number: 2004053590

PATIENT

DRUGS (4)
  1. NORVASC [Suspect]
     Indication: HYPERTENSION
  2. GLUCOTROL [Suspect]
     Indication: DIABETES MELLITUS
  3. GLUCOTROL XL [Suspect]
     Indication: DIABETES MELLITUS
  4. ALL OTHER THERAPEUTIC PRODUCTS (ALL OTHER THERAPEUTIC PRODUCTS) [Concomitant]

REACTIONS (3)
  - ANXIETY [None]
  - ECONOMIC PROBLEM [None]
  - RADIOTHERAPY TO PROSTATE [None]
